FAERS Safety Report 14931266 (Version 3)
Quarter: 2018Q2

REPORT INFORMATION
  Report Type: Spontaneous
  Country: BR (occurrence: BR)
  Receive Date: 20180524
  Receipt Date: 20180614
  Transmission Date: 20180711
  Serious: Yes (Death, Other)
  Sender: FDA-Public Use
  Company Number: BR-ROCHE-2123255

PATIENT
  Sex: Female

DRUGS (3)
  1. GRANULOKINE [Concomitant]
     Active Substance: FILGRASTIM
  2. XELODA [Suspect]
     Active Substance: CAPECITABINE
     Indication: COLORECTAL CANCER
     Dosage: ONE TABLET IN THE MORNING AND 2 TABLETS AT NIGHT
     Route: 048
  3. XELODA [Suspect]
     Active Substance: CAPECITABINE
     Dosage: ONE TABLET IN THE MORNING
     Route: 048
     Dates: end: 20180511

REACTIONS (8)
  - Death [Fatal]
  - Erythema [Not Recovered/Not Resolved]
  - Decreased appetite [Not Recovered/Not Resolved]
  - Weight decreased [Not Recovered/Not Resolved]
  - Peripheral swelling [Unknown]
  - Peripheral swelling [Not Recovered/Not Resolved]
  - Cell marker increased [Unknown]
  - Chromaturia [Not Recovered/Not Resolved]
